FAERS Safety Report 5469429-7 (Version None)
Quarter: 2007Q3

REPORT INFORMATION
  Report Type: 
  Country: None (occurrence: None)
  Receive Date: 20070927
  Receipt Date: 20070919
  Transmission Date: 20080115
  Serious: Yes (Other)
  Sender: FDA-Public Use
  Company Number: BR-ASTRAZENECA-2007UW21324

PATIENT
  Age: 65 Year
  Sex: Female
  Weight: 64 kg

DRUGS (8)
  1. SYMBICORT [Suspect]
     Indication: ASTHMA
     Dosage: 320/9 UG
     Route: 055
     Dates: start: 20070906, end: 20070906
  2. HYGROTON [Concomitant]
     Route: 048
  3. SELOKAR [Concomitant]
     Route: 048
  4. BEROTEC [Concomitant]
     Route: 055
     Dates: start: 20070902
  5. ATROVENT [Concomitant]
     Route: 055
     Dates: start: 20070902
  6. AMITRIPTILINA [Concomitant]
     Route: 048
     Dates: start: 19980101
  7. POTASSIUM CHLORIDE [Concomitant]
     Route: 048
     Dates: start: 20010101
  8. LEVOTIROXINA [Concomitant]
     Route: 048
     Dates: start: 19980101

REACTIONS (4)
  - COUGH [None]
  - DYSPNOEA [None]
  - PHARYNGEAL OEDEMA [None]
  - THROAT TIGHTNESS [None]
